FAERS Safety Report 6506036-9 (Version None)
Quarter: 2009Q4

REPORT INFORMATION
  Report Type: 
  Country: None (occurrence: None)
  Receive Date: 20091201
  Receipt Date: 20090504
  Transmission Date: 20100525
  Serious: Yes (Hospitalization)
  Sender: FDA-Public Use
  Company Number: 2008-183075-NL

PATIENT
  Age: 41 Year
  Sex: Female
  Weight: 123.8 kg

DRUGS (4)
  1. NUVARING [Suspect]
     Indication: DRUG USE FOR UNKNOWN INDICATION
     Dates: start: 20051110, end: 20071213
  2. ZOLOFT [Concomitant]
  3. MOBIC [Concomitant]
  4. PRILOSEC [Concomitant]

REACTIONS (1)
  - PULMONARY EMBOLISM [None]
